FAERS Safety Report 21073407 (Version 3)
Quarter: 2022Q4

REPORT INFORMATION
  Report Type: Spontaneous
  Country: US (occurrence: US)
  Receive Date: 20220713
  Receipt Date: 20221221
  Transmission Date: 20230113
  Serious: Yes (Other)
  Sender: FDA-Public Use
  Company Number: US-BRISTOL-MYERS SQUIBB COMPANY-2022-067693

PATIENT
  Age: 21 Year
  Sex: Female

DRUGS (4)
  1. THALOMID [Suspect]
     Active Substance: THALIDOMIDE
     Indication: Medulloblastoma
     Dosage: FREQUENCY-DAILY
     Route: 048
     Dates: start: 202004
  2. ETOPOSIDE [Suspect]
     Active Substance: ETOPOSIDE
     Indication: Medulloblastoma
     Route: 048
  3. CYTOXAN [Suspect]
     Active Substance: CYCLOPHOSPHAMIDE
     Indication: Medulloblastoma
     Route: 048
  4. SIMVASTATIN [Suspect]
     Active Substance: SIMVASTATIN
     Indication: Medulloblastoma

REACTIONS (2)
  - Off label use [Unknown]
  - Acute myeloid leukaemia [Unknown]

NARRATIVE: CASE EVENT DATE: 20200401
